FAERS Safety Report 15065464 (Version 1)
Quarter: 2018Q2

REPORT INFORMATION
  Report Type: Report from Study
  Country: PT (occurrence: PT)
  Receive Date: 20180626
  Receipt Date: 20180626
  Transmission Date: 20180711
  Serious: Yes (Hospitalization)
  Sender: FDA-Public Use
  Company Number: PT-ROCHE-2091436

PATIENT
  Age: 87 Year
  Sex: Male

DRUGS (14)
  1. TRASTUZUMAB. [Suspect]
     Active Substance: TRASTUZUMAB
     Indication: BREAST CANCER
     Dosage: MOST RECENT DOSE PRIOR TO THE EVENT: 25/MAY/2017
     Route: 042
     Dates: start: 20170406
  2. PERTUZUMAB. [Suspect]
     Active Substance: PERTUZUMAB
     Indication: BREAST CANCER
     Dosage: MOST RECENT DOSE PRIOR TO THE EVENT: 04/MAY/2017
     Route: 042
     Dates: start: 20170406
  3. METAMIZOL [Concomitant]
     Active Substance: METAMIZOLE SODIUM
     Route: 065
     Dates: start: 20180129
  4. MEGESTROL [Concomitant]
     Active Substance: MEGESTROL
     Route: 065
  5. LISINOPRIL. [Concomitant]
     Active Substance: LISINOPRIL
     Route: 065
  6. LOPERAMIDE [Concomitant]
     Active Substance: LOPERAMIDE
     Indication: DIARRHOEA
     Route: 065
     Dates: start: 20170415
  7. METFORMIN [Concomitant]
     Active Substance: METFORMIN HYDROCHLORIDE
     Route: 065
  8. PACLITAXEL. [Suspect]
     Active Substance: PACLITAXEL
     Indication: BREAST CANCER
     Route: 042
     Dates: start: 20170316
  9. ACETYLSALICYLIC ACID [Concomitant]
     Active Substance: ASPIRIN
     Route: 065
  10. TAPENTADOL [Concomitant]
     Active Substance: TAPENTADOL
     Route: 065
     Dates: start: 20180115
  11. PARACETAMOL [Concomitant]
     Active Substance: ACETAMINOPHEN
     Indication: LIMB INJURY
     Route: 065
     Dates: start: 20170805
  12. DICLOFENAC [Concomitant]
     Active Substance: DICLOFENAC
     Indication: LIMB INJURY
     Route: 061
     Dates: start: 20170808
  13. LATANOPROST. [Concomitant]
     Active Substance: LATANOPROST
     Route: 065
     Dates: start: 20180115
  14. METOCLOPRAMIDE. [Concomitant]
     Active Substance: METOCLOPRAMIDE
     Indication: NAUSEA
     Route: 065
     Dates: start: 20170420

REACTIONS (1)
  - Pneumonia [Recovered/Resolved]

NARRATIVE: CASE EVENT DATE: 20180216
